FAERS Safety Report 7642043-0 (Version None)
Quarter: 2011Q3

REPORT INFORMATION
  Report Type: 
  Country: None (occurrence: None)
  Receive Date: 20110722
  Receipt Date: 20110711
  Transmission Date: 20111222
  Serious: Yes (Hospitalization)
  Sender: FDA-Public Use
  Company Number: 009268

PATIENT
  Sex: Male

DRUGS (1)
  1. EKISTOL (CILOSTAZOL) TABLET [Suspect]
     Indication: INTERMITTENT CLAUDICATION
     Dosage: 100 MG, ORAL
     Route: 048
     Dates: start: 20100301, end: 20100301

REACTIONS (1)
  - VENTRICULAR ARRHYTHMIA [None]
